FAERS Safety Report 5455718-9 (Version None)
Quarter: 2007Q3

REPORT INFORMATION
  Report Type: 
  Country: None (occurrence: None)
  Receive Date: 20070918
  Receipt Date: 20070904
  Transmission Date: 20080115
  Serious: Yes (Hospitalization)
  Sender: FDA-Public Use
  Company Number: FR-GENENTECH-247080

PATIENT
  Sex: Male
  Weight: 106 kg

DRUGS (6)
  1. XOLAIR [Suspect]
     Indication: ASTHMA
     Dosage: 375 MG, 2/WEEK
     Route: 058
     Dates: start: 20070301
  2. SERETIDE [Concomitant]
     Indication: DRUG USE FOR UNKNOWN INDICATION
  3. COMBIVENT [Concomitant]
     Indication: DRUG USE FOR UNKNOWN INDICATION
  4. EUPHYLLINE L.A. [Concomitant]
     Indication: DRUG USE FOR UNKNOWN INDICATION
  5. ZESTORETIC (12.5/20) [Concomitant]
     Indication: DRUG USE FOR UNKNOWN INDICATION
  6. ISOPTIN [Concomitant]
     Indication: DRUG USE FOR UNKNOWN INDICATION

REACTIONS (2)
  - ASTHMATIC CRISIS [None]
  - DRUG INEFFECTIVE [None]
